FAERS Safety Report 18531772 (Version 4)
Quarter: 2021Q2

REPORT INFORMATION
  Report Type: Report from Study
  Country: US (occurrence: US)
  Receive Date: 20201123
  Receipt Date: 20210518
  Transmission Date: 20210717
  Serious: No
  Sender: FDA-Public Use
  Company Number: US-BIOVITRUM-2020US4164

PATIENT
  Age: 45 Year
  Sex: Male

DRUGS (1)
  1. KINERET [Suspect]
     Active Substance: ANAKINRA
     Indication: STILL^S DISEASE
     Route: 058
     Dates: start: 201905

REACTIONS (5)
  - Product dose omission issue [Unknown]
  - Off label use [Unknown]
  - Pain [Unknown]
  - Dry skin [Unknown]
  - Malaise [Unknown]

NARRATIVE: CASE EVENT DATE: 201905
